FAERS Safety Report 9174677 (Version 2)
Quarter: 2013Q2

REPORT INFORMATION
  Report Type: Spontaneous
  Country: JP (occurrence: JP)
  Receive Date: 20130320
  Receipt Date: 20130405
  Transmission Date: 20140414
  Serious: Yes (Life-Threatening)
  Sender: FDA-Public Use
  Company Number: JP-ASTRAZENECA-2013SE17342

PATIENT
  Age: 20976 Day
  Sex: Male
  Weight: 92 kg

DRUGS (9)
  1. XYLOCAINE [Suspect]
     Indication: INFILTRATION ANAESTHESIA
     Route: 058
     Dates: start: 20120330
  2. XYLOCAINE [Suspect]
     Indication: INFILTRATION ANAESTHESIA
     Dosage: 40 MG
     Route: 058
     Dates: start: 20120420
  3. XYLOCAINE [Suspect]
     Indication: INFILTRATION ANAESTHESIA
     Route: 058
     Dates: start: 20130308
  4. MICOMBI [Concomitant]
     Indication: HYPERTENSION
     Dosage: DOSE UNKNOWN, FREQUENCY DAILY
     Route: 048
  5. NORVASC [Concomitant]
     Indication: HYPERTENSION
     Route: 048
  6. RASILEZ [Concomitant]
     Indication: HYPERTENSION
     Route: 048
  7. ARTIST [Concomitant]
     Indication: HYPERTENSION
     Route: 048
  8. BAYASPIRIN [Concomitant]
     Indication: MYOCARDIAL INFARCTION
     Route: 048
     Dates: start: 20120331
  9. PLAVIX [Concomitant]
     Indication: MYOCARDIAL INFARCTION
     Route: 048
     Dates: start: 20120331

REACTIONS (4)
  - Shock [Recovered/Resolved]
  - Hypotension [Recovered/Resolved]
  - Bradycardia [Recovered/Resolved]
  - Drug hypersensitivity [Unknown]
